FAERS Safety Report 8367069-3 (Version None)
Quarter: 2012Q2

REPORT INFORMATION
  Report Type: 
  Country: None (occurrence: None)
  Receive Date: 20120517
  Receipt Date: 20120504
  Transmission Date: 20120825
  Serious: Yes (Other)
  Sender: FDA-Public Use
  Company Number: NL-ELI_LILLY_AND_COMPANY-NL201204003866

PATIENT
  Sex: Male

DRUGS (10)
  1. FOLIC ACID [Concomitant]
     Dosage: 0.5 MG, UNK
     Route: 048
     Dates: start: 20120301
  2. VITAMIN B-12 [Concomitant]
     Dosage: 1000 UG, UNK
     Route: 030
     Dates: start: 20120301
  3. ALIMTA [Suspect]
     Indication: NON-SMALL CELL LUNG CANCER
     Dosage: 500 MG, UNKNOWN
     Dates: start: 20120312
  4. SIMVASTATIN [Concomitant]
     Dosage: 20 MG, UNK
     Route: 048
  5. ACETAMINOPHEN [Concomitant]
     Dosage: 1000 MG, UNK
     Dates: start: 20120322
  6. TRAMADOL HYDROCHLORIDE [Concomitant]
     Dosage: 50 MG, UNK
     Route: 048
  7. MOVICOLON [Concomitant]
     Dosage: UNK, PRN
     Route: 048
  8. TOLBUTAMIDE [Concomitant]
     Indication: DIABETES MELLITUS
     Dosage: 500 MG, UNK
     Route: 048
  9. METOCLOPRAMIDE [Concomitant]
     Indication: CHEMOTHERAPY
     Dosage: 10 MG, UNK
     Route: 048
     Dates: start: 20120312
  10. METFORMIN HCL [Concomitant]
     Indication: DIABETES MELLITUS
     Dosage: 500 MG, UNK

REACTIONS (4)
  - SEPSIS [None]
  - DECUBITUS ULCER [None]
  - LOCALISED INFECTION [None]
  - TRANSMISSION OF AN INFECTIOUS AGENT VIA A MEDICINAL PRODUCT [None]
